FAERS Safety Report 21523541 (Version 1)
Quarter: 2022Q4

REPORT INFORMATION
  Report Type: Report from Study
  Country: US (occurrence: US)
  Receive Date: 20221029
  Receipt Date: 20221029
  Transmission Date: 20230113
  Serious: No
  Sender: FDA-Public Use
  Company Number: US-ABBVIE-22K-163-4470125-00

PATIENT
  Sex: Male

DRUGS (1)
  1. HUMIRA [Suspect]
     Active Substance: ADALIMUMAB
     Indication: Crohn^s disease
     Dosage: CITRATE FREE
     Route: 058
     Dates: start: 20220505, end: 20220908

REACTIONS (5)
  - Fatigue [Unknown]
  - Diverticulitis [Unknown]
  - Therapeutic response shortened [Unknown]
  - Nausea [Unknown]
  - Muscle spasms [Unknown]
